FAERS Safety Report 14581894 (Version 1)
Quarter: 2018Q1

REPORT INFORMATION
  Report Type: Report from Study
  Country: BR (occurrence: BR)
  Receive Date: 20180228
  Receipt Date: 20180228
  Transmission Date: 20180509
  Serious: Yes (Hospitalization)
  Sender: FDA-Public Use
  Company Number: BR-JNJFOC-20180232766

PATIENT
  Age: 51 Year
  Sex: Female
  Weight: 50 kg

DRUGS (1)
  1. USTEKINUMAB [Suspect]
     Active Substance: USTEKINUMAB
     Indication: CROHN^S DISEASE
     Route: 042
     Dates: start: 20180112

REACTIONS (1)
  - Pneumonia bacterial [Unknown]

NARRATIVE: CASE EVENT DATE: 20180220
